FAERS Safety Report 15691623 (Version 1)
Quarter: 2018Q4

REPORT INFORMATION
  Report Type: Spontaneous
  Country: JP (occurrence: JP)
  Receive Date: 20181205
  Receipt Date: 20181205
  Transmission Date: 20190205
  Serious: Yes (Other)
  Sender: FDA-Public Use
  Company Number: JP-MYLANLABS-2018M1089040

PATIENT
  Age: 90 Year
  Sex: Female
  Weight: 42.2 kg

DRUGS (3)
  1. GEFITINIB. [Suspect]
     Active Substance: GEFITINIB
     Indication: LUNG ADENOCARCINOMA STAGE IV
     Route: 065
  2. OSIMERTINIB. [Suspect]
     Active Substance: OSIMERTINIB
     Indication: LUNG ADENOCARCINOMA STAGE IV
     Route: 065
  3. ERLOTINIB [Suspect]
     Active Substance: ERLOTINIB
     Indication: LUNG ADENOCARCINOMA STAGE IV
     Route: 065

REACTIONS (9)
  - Diarrhoea [Recovering/Resolving]
  - Dermatitis acneiform [Recovering/Resolving]
  - Leukopenia [Unknown]
  - Alopecia [Recovering/Resolving]
  - Paronychia [Recovering/Resolving]
  - Aspartate aminotransferase increased [Recovering/Resolving]
  - Drug resistance [Unknown]
  - Alanine aminotransferase increased [Recovering/Resolving]
  - Dry skin [Recovering/Resolving]
